FAERS Safety Report 20407753 (Version 5)
Quarter: 2022Q2

REPORT INFORMATION
  Report Type: Report from Study
  Country: US (occurrence: US)
  Receive Date: 20220131
  Receipt Date: 20220418
  Transmission Date: 20220720
  Serious: Yes (Death, Other)
  Sender: FDA-Public Use
  Company Number: US-ABBVIE-22K-163-4253224-00

PATIENT
  Age: 65 Year
  Sex: Female

DRUGS (17)
  1. DUOPA [Suspect]
     Active Substance: CARBIDOPA\LEVODOPA
     Indication: Parkinson^s disease
     Route: 050
     Dates: start: 20180131, end: 2018
  2. DUOPA [Suspect]
     Active Substance: CARBIDOPA\LEVODOPA
     Route: 050
     Dates: start: 20180207, end: 20220327
  3. MIRTAZAPINE [Concomitant]
     Active Substance: MIRTAZAPINE
     Indication: Product used for unknown indication
     Route: 048
  4. ESCITALOPRAM [Concomitant]
     Active Substance: ESCITALOPRAM OXALATE
     Indication: Product used for unknown indication
     Route: 048
  5. DONEPEZIL [Concomitant]
     Active Substance: DONEPEZIL
     Indication: Product used for unknown indication
     Route: 048
  6. MEMANTINE [Concomitant]
     Active Substance: MEMANTINE
     Indication: Product used for unknown indication
     Route: 048
  7. NUPLAZID [Concomitant]
     Active Substance: PIMAVANSERIN TARTRATE
     Indication: Product used for unknown indication
     Route: 048
  8. RYTARY [Concomitant]
     Active Substance: CARBIDOPA\LEVODOPA
     Indication: Product used for unknown indication
     Dosage: 1 TAB AT NIGHT, 48.75-195MG
     Route: 048
  9. CARBIDOPA, LEVODOPA AND ENTACAPONE [Concomitant]
     Active Substance: CARBIDOPA\ENTACAPONE\LEVODOPA
     Indication: Product used for unknown indication
     Dosage: 12 TAB
     Route: 048
  10. TYLENOL [Concomitant]
     Active Substance: ACETAMINOPHEN
     Indication: Pyrexia
  11. TYLENOL [Concomitant]
     Active Substance: ACETAMINOPHEN
     Indication: Pain
  12. BISACODYL [Concomitant]
     Active Substance: BISACODYL
     Indication: Constipation
  13. HYOSCYAMINE [Concomitant]
     Active Substance: HYOSCYAMINE
     Indication: Secretion discharge
  14. LORAZEPAM [Concomitant]
     Active Substance: LORAZEPAM
     Indication: Anxiety
  15. LORAZEPAM [Concomitant]
     Active Substance: LORAZEPAM
     Indication: Restlessness
  16. MORPHINE [Concomitant]
     Active Substance: MORPHINE
     Indication: Pain
  17. MORPHINE [Concomitant]
     Active Substance: MORPHINE
     Indication: Dyspnoea

REACTIONS (15)
  - Parkinson^s disease [Fatal]
  - Palliative care [Unknown]
  - Unresponsive to stimuli [Unknown]
  - Coma [Unknown]
  - Impaired healing [Unknown]
  - Fall [Unknown]
  - General physical health deterioration [Unknown]
  - Failure to thrive [Unknown]
  - Vulvovaginal pain [Unknown]
  - Dementia [Not Recovered/Not Resolved]
  - Hypophagia [Unknown]
  - Fluid intake reduced [Unknown]
  - Psychotic disorder [Unknown]
  - Hallucination [Unknown]
  - On and off phenomenon [Unknown]

NARRATIVE: CASE EVENT DATE: 20220301
